FAERS Safety Report 8517479-6 (Version None)
Quarter: 2012Q3

REPORT INFORMATION
  Report Type: 
  Country: None (occurrence: None)
  Receive Date: 20120718
  Receipt Date: 20120716
  Transmission Date: 20120928
  Serious: No
  Sender: FDA-Public Use
  Company Number: US-PFIZER INC-2012170937

PATIENT
  Sex: Female

DRUGS (2)
  1. CHANTIX [Suspect]
     Dosage: UNK
     Dates: start: 20120701, end: 20120701
  2. CHANTIX [Suspect]
     Dosage: UNK, 2X/DAY
     Dates: start: 20120701

REACTIONS (1)
  - NAUSEA [None]
